FAERS Safety Report 9978409 (Version 2)
Quarter: 2015Q1

REPORT INFORMATION
  Report Type: Report from Study
  Country: US (occurrence: US)
  Receive Date: 20140306
  Receipt Date: 20150216
  Transmission Date: 20150721
  Serious: Yes (Other)
  Sender: FDA-Public Use
  Company Number: US-ABBVIE-13P-163-1172804-00

PATIENT
  Age: 61 Year
  Sex: Male

DRUGS (1)
  1. HUMIRA [Suspect]
     Active Substance: ADALIMUMAB
     Indication: PSORIASIS
     Dates: start: 201104, end: 20130712

REACTIONS (5)
  - Pneumonia [Recovered/Resolved]
  - Haemoptysis [Unknown]
  - Squamous cell carcinoma of lung [Not Recovered/Not Resolved]
  - Drug eruption [Unknown]
  - Pneumonia [Unknown]

NARRATIVE: CASE EVENT DATE: 20130719
